FAERS Safety Report 25751717 (Version 1)
Quarter: 2025Q3

REPORT INFORMATION
  Report Type: Spontaneous
  Country: US (occurrence: None)
  Receive Date: 20250901
  Receipt Date: 20250901
  Transmission Date: 20251021
  Serious: No
  Sender: FDA-CTU
  Company Number: None

PATIENT
  Sex: Female

DRUGS (1)
  1. AUVELITY [Suspect]
     Active Substance: BUPROPION HYDROCHLORIDE\DEXTROMETHORPHAN HYDROBROMIDE
     Indication: Depression
     Dates: start: 20250829, end: 20250901

REACTIONS (5)
  - Poisoning [None]
  - Dizziness [None]
  - Somnolence [None]
  - Dissociation [None]
  - Gait disturbance [None]
